FAERS Safety Report 9633898 (Version 1)
Quarter: 2013Q4

REPORT INFORMATION
  Report Type: Report from Study
  Country: FR (occurrence: FR)
  Receive Date: 20131021
  Receipt Date: 20131021
  Transmission Date: 20140711
  Serious: Yes (Other)
  Sender: FDA-Public Use
  Company Number: FR-PFIZER INC-2013297898

PATIENT
  Sex: Female

DRUGS (2)
  1. FLUOROURACIL [Suspect]
     Indication: BREAST CANCER
     Dosage: 500 MG/M2/D, CONTINUOUS INFUSION OVER FIVE CONSECUTIVE DAYS (D1-D5), EVERY 3 WEEKS FOR FOUR COURSES
     Route: 042
  2. VINORELBINE [Suspect]
     Indication: BREAST CANCER
     Dosage: 25 MG/M2, CYCLIC, SHORT INTRAVENOUS INFUSION ON DAYS 1 AND 6, EVERY 3 WEEKS FOR FOUR COURSES
     Route: 042

REACTIONS (2)
  - Skin toxicity [Unknown]
  - Gastrointestinal toxicity [Unknown]
